FAERS Safety Report 4723612-4 (Version None)
Quarter: 2005Q3

REPORT INFORMATION
  Report Type: 
  Country: None (occurrence: None)
  Receive Date: 20050719
  Receipt Date: 20050711
  Transmission Date: 20060218
  Serious: Yes (Hospitalization)
  Sender: FDA-Public Use
  Company Number: SAGL-ZLB/05/65/GFR

PATIENT
  Age: 49 Year
  Sex: Male
  Weight: 67 kg

DRUGS (1)
  1. SANDOGLOBULIN [Suspect]
     Indication: GUILLAIN-BARRE SYNDROME
     Dosage: 20 G, ONCE, I.V.
     Route: 042
     Dates: start: 20050708, end: 20050708

REACTIONS (6)
  - BRADYCARDIA [None]
  - BRONCHOSPASM [None]
  - CONJUNCTIVITIS [None]
  - FLUSHING [None]
  - HYPOTENSION [None]
  - INFUSION RELATED REACTION [None]
